FAERS Safety Report 24268587 (Version 1)
Quarter: 2024Q3

REPORT INFORMATION
  Report Type: Spontaneous
  Country: US (occurrence: US)
  Receive Date: 20240830
  Receipt Date: 20240830
  Transmission Date: 20241017
  Serious: No
  Sender: MAYNE
  Company Number: US-MAYNE PHARMA-2024MYN000194

PATIENT

DRUGS (1)
  1. ANNOVERA [Suspect]
     Active Substance: ETHINYL ESTRADIOL\SEGESTERONE ACETATE
     Indication: Product used for unknown indication
     Dosage: 0.15/0.013 MILLIGRAM
     Route: 067

REACTIONS (3)
  - Haemorrhage [Unknown]
  - Device use issue [Unknown]
  - Expired device used [Unknown]
